FAERS Safety Report 20616200 (Version 2)
Quarter: 2022Q4

REPORT INFORMATION
  Report Type: Report from Study
  Country: FR (occurrence: FR)
  Receive Date: 20220321
  Receipt Date: 20221115
  Transmission Date: 20230113
  Serious: Yes (Other)
  Sender: FDA-Public Use
  Company Number: FR-SA-SAC20220228001466

PATIENT
  Age: 53 Year
  Sex: Male
  Weight: 90 kg

DRUGS (13)
  1. ISATUXIMAB [Suspect]
     Active Substance: ISATUXIMAB
     Indication: Minimal residual disease
     Dosage: 870 MG, QW
     Route: 042
     Dates: start: 20220125, end: 20220125
  2. ISATUXIMAB [Suspect]
     Active Substance: ISATUXIMAB
     Dosage: 870 MG, QW
     Route: 042
     Dates: start: 20220215, end: 20220215
  3. CARFILZOMIB [Suspect]
     Active Substance: CARFILZOMIB
     Indication: Minimal residual disease
     Dosage: 40 MG, QW
     Route: 042
     Dates: start: 20220125, end: 20220125
  4. CARFILZOMIB [Suspect]
     Active Substance: CARFILZOMIB
     Dosage: 40 MG, QW
     Route: 042
     Dates: start: 20220208, end: 20220208
  5. DEXAMETHASONE [Suspect]
     Active Substance: DEXAMETHASONE
     Indication: Minimal residual disease
     Dosage: 40 MG, QW
     Route: 048
     Dates: start: 20220125, end: 20220125
  6. DEXAMETHASONE [Suspect]
     Active Substance: DEXAMETHASONE
     Dosage: 40 MG, QW
     Route: 048
     Dates: start: 20220215, end: 20220215
  7. LENALIDOMIDE [Suspect]
     Active Substance: LENALIDOMIDE
     Indication: Minimal residual disease
     Dosage: 25 MG, QD
     Route: 048
     Dates: start: 20220125, end: 20220214
  8. LENALIDOMIDE [Suspect]
     Active Substance: LENALIDOMIDE
     Dosage: 25 MG, QD
     Route: 048
     Dates: start: 20220214, end: 20220214
  9. AUGMENTIN [Concomitant]
     Active Substance: AMOXICILLIN\CLAVULANATE POTASSIUM
     Indication: Pain
     Dosage: UNK
     Dates: start: 20220223
  10. AUGMENTIN [Concomitant]
     Active Substance: AMOXICILLIN\CLAVULANATE POTASSIUM
     Indication: Oedema peripheral
  11. AUGMENTIN [Concomitant]
     Active Substance: AMOXICILLIN\CLAVULANATE POTASSIUM
     Indication: Cough
  12. ACETAMINOPHEN [Concomitant]
     Active Substance: ACETAMINOPHEN
     Indication: Pyrexia
     Dosage: UNK
  13. ACETAMINOPHEN [Concomitant]
     Active Substance: ACETAMINOPHEN
     Indication: Back pain

REACTIONS (1)
  - Deep vein thrombosis [Recovered/Resolved with Sequelae]

NARRATIVE: CASE EVENT DATE: 20220222
